FAERS Safety Report 21943274 (Version 1)
Quarter: 2023Q1

REPORT INFORMATION
  Report Type: Spontaneous
  Country: BR (occurrence: BR)
  Receive Date: 20230202
  Receipt Date: 20230202
  Transmission Date: 20230417
  Serious: Yes (Hospitalization)
  Sender: FDA-Public Use
  Company Number: BR-CADILA HEALTHCARE LIMITED-BR-ZYDUS-087710

PATIENT

DRUGS (2)
  1. TRANEXAMIC ACID [Suspect]
     Active Substance: TRANEXAMIC ACID
     Indication: Haemorrhage
     Dosage: 1 TABLET 3 TIMES A DAY
     Route: 048
     Dates: start: 20220409, end: 20220425
  2. MEROPENEM [Concomitant]
     Active Substance: MEROPENEM
     Indication: Product used for unknown indication
     Dosage: UNK
     Route: 065

REACTIONS (10)
  - Stevens-Johnson syndrome [Recovered/Resolved]
  - Dysuria [Recovered/Resolved]
  - Hepatic enzyme increased [Recovered/Resolved]
  - Hyperaemia [Recovered/Resolved]
  - Oedema [Recovered/Resolved]
  - Pancytopenia [Recovered/Resolved]
  - Photophobia [Recovered/Resolved]
  - Pruritus [Recovered/Resolved]
  - Wheezing [Recovered/Resolved]
  - Rash [Recovered/Resolved]

NARRATIVE: CASE EVENT DATE: 20220422
